FAERS Safety Report 4895184-5 (Version None)
Quarter: 2006Q1

REPORT INFORMATION
  Report Type: 
  Country: None (occurrence: None)
  Receive Date: 20060125
  Receipt Date: 20021209
  Transmission Date: 20060701
  Serious: No
  Sender: FDA-Public Use
  Company Number: FR_021201761

PATIENT
  Age: 75 Year
  Sex: Female

DRUGS (2)
  1. VANCOMYCIN [Suspect]
     Indication: INTERVERTEBRAL DISCITIS
     Dates: start: 20021104
  2. VANCOMYCIN [Suspect]
     Indication: SPONDYLITIS
     Dates: start: 20021104

REACTIONS (1)
  - HYPERSENSITIVITY [None]
